FAERS Safety Report 16168854 (Version 1)
Quarter: 2019Q2

REPORT INFORMATION
  Report Type: Spontaneous
  Country: US (occurrence: US)
  Receive Date: 20190305
  Receipt Date: 20190305
  Transmission Date: 20190713
  Serious: No
  Sender: FDA-Public Use
  Company Number: None

PATIENT
  Age: 64 Year
  Sex: Male
  Weight: 76.7 kg

DRUGS (1)
  1. GENERIC XANAX [Suspect]
     Active Substance: ALPRAZOLAM

REACTIONS (2)
  - Tremor [None]
  - Product substitution issue [None]
